FAERS Safety Report 13185242 (Version 1)
Quarter: 2017Q1

REPORT INFORMATION
  Report Type: Spontaneous
  Country: US (occurrence: US)
  Receive Date: 20170203
  Receipt Date: 20170203
  Transmission Date: 20170428
  Serious: Yes (Other)
  Sender: FDA-Public Use
  Company Number: US-SAOL THERAPEUTICS-2017SAO00215

PATIENT
  Age: 46 Year
  Sex: Female
  Weight: 98 kg

DRUGS (15)
  1. PEPCID [Concomitant]
     Active Substance: FAMOTIDINE
  2. DIAMOX SEQUELS [Concomitant]
     Active Substance: ACETAZOLAMIDE
  3. DEXTROSE. [Concomitant]
     Active Substance: DEXTROSE
  4. PERCOCET [Concomitant]
     Active Substance: ACETAMINOPHEN\OXYCODONE HYDROCHLORIDE
  5. FLOMAX [Concomitant]
     Active Substance: TAMSULOSIN HYDROCHLORIDE
  6. BACLOFEN. [Suspect]
     Active Substance: BACLOFEN
     Indication: MUSCLE SPASTICITY
     Dosage: 199.9 ?G, \DAY
     Dates: start: 20170103
  7. LIPITOR [Concomitant]
     Active Substance: ATORVASTATIN CALCIUM
  8. ACYCLOVIR. [Concomitant]
     Active Substance: ACYCLOVIR
  9. ATARAX [Concomitant]
     Active Substance: HYDROXYZINE HYDROCHLORIDE
  10. LYRICA [Concomitant]
     Active Substance: PREGABALIN
  11. FLORINEF ACETATE [Concomitant]
     Active Substance: FLUDROCORTISONE ACETATE
  12. VANCOMYCIN [Concomitant]
     Active Substance: VANCOMYCIN
  13. VITAMIN D [Concomitant]
     Active Substance: CHOLECALCIFEROL
  14. ZOFRAN [Concomitant]
     Active Substance: ONDANSETRON HYDROCHLORIDE
  15. GLUCAGON. [Concomitant]
     Active Substance: GLUCAGON

REACTIONS (1)
  - Catheter site granuloma [Recovered/Resolved]

NARRATIVE: CASE EVENT DATE: 20170127
